FAERS Safety Report 6637192-X (Version None)
Quarter: 2010Q1

REPORT INFORMATION
  Report Type: 
  Country: None (occurrence: None)
  Receive Date: 20100310
  Receipt Date: 20070207
  Transmission Date: 20100710
  Serious: Yes (Hospitalization, Disabling, Other)
  Sender: FDA-Public Use
  Company Number: 2009-2799

PATIENT
  Age: 67 Year
  Sex: Male

DRUGS (14)
  1. APO-GO (APOMORPHINE HYDROCHLORIDE) (APOMORPHINE HYDROCHLORIDE) [Suspect]
     Indication: PARKINSON'S DISEASE
     Dosage: SEE IMAGE
     Route: 058
     Dates: start: 20061204, end: 20061201
  2. APO-GO (APOMORPHINE HYDROCHLORIDE) (APOMORPHINE HYDROCHLORIDE) [Suspect]
     Indication: PARKINSON'S DISEASE
     Dosage: SEE IMAGE
     Route: 058
     Dates: end: 20061204
  3. APO-GO (APOMORPHINE HYDROCHLORIDE) (APOMORPHINE HYDROCHLORIDE) [Suspect]
     Indication: PARKINSON'S DISEASE
     Dosage: SEE IMAGE
     Route: 058
     Dates: start: 20061211
  4. APO-GO (APOMORPHINE HYDROCHLORIDE) (APOMORPHINE HYDROCHLORIDE) [Suspect]
     Indication: PARKINSON'S DISEASE
     Dosage: SEE IMAGE
     Route: 058
     Dates: start: 20070201
  5. SINEMET PLUS (SINEMET) (CARBIDOPA, LEVODOPA) [Concomitant]
  6. SINEMET CR (SINEMET) (CARBIDOPA, LEVODOPA) [Concomitant]
  7. DOMPERIDONE (DOMPERIDONE) (DOMPERIDONE) [Concomitant]
  8. CLOPIDOGREL (CLOPIDOGREL) (CLOPIDOGREL) [Concomitant]
  9. MIXTARD 30 PENFILL (HUMAN MIXTARD /00806401/) (INSULIN INJECTION, BIPH [Concomitant]
  10. AMANTADINE (AMANTADINE) (AMANTADINE) [Concomitant]
  11. SUDOCREM (SUDOCREM) (BENZYL, ALCOHOL, BENZYL, BENZOATE, BENZYL CINNAMT [Concomitant]
  12. PARACETAMOL (PARACETAMOL) (PARACETAMOL) [Concomitant]
  13. GLYCERYL TRINITRATE (GLYCERYL TRINITRATE) (GLYCERYL TRINITRATE) [Concomitant]
  14. CETRABEN (CETRABEN /01561901/) (PARAFIN SOFT, PARAFIN, LIQUID) [Concomitant]

REACTIONS (3)
  - DRUG INEFFECTIVE [None]
  - IMMOBILE [None]
  - MYOCARDIAL INFARCTION [None]
